FAERS Safety Report 5002724-4 (Version None)
Quarter: 2006Q2

REPORT INFORMATION
  Report Type: 
  Country: None (occurrence: None)
  Receive Date: 20060516
  Receipt Date: 20060323
  Transmission Date: 20061013
  Serious: Yes (Other)
  Sender: FDA-Public Use
  Company Number: PHBS2006BE04588

PATIENT
  Age: 11 Year
  Sex: Male
  Weight: 30 kg

DRUGS (2)
  1. TEGRETOL [Suspect]
     Indication: GRAND MAL CONVULSION
     Dosage: 7 ML, BID
     Route: 048
     Dates: start: 20051022, end: 20051122
  2. SERTRALINE HCL [Concomitant]
     Dosage: 2.5 MG/EVENING
     Route: 065

REACTIONS (14)
  - ALANINE AMINOTRANSFERASE INCREASED [None]
  - ASPARTATE AMINOTRANSFERASE INCREASED [None]
  - BLOOD ALKALINE PHOSPHATASE INCREASED [None]
  - BLOOD LACTATE DEHYDROGENASE INCREASED [None]
  - CHOLESTASIS [None]
  - CYTOLYTIC HEPATITIS [None]
  - DERMOID CYST [None]
  - GAMMA-GLUTAMYLTRANSFERASE INCREASED [None]
  - HEPATIC FUNCTION ABNORMAL [None]
  - NUCLEAR MAGNETIC RESONANCE IMAGING ABNORMAL [None]
  - PRURITUS [None]
  - RASH [None]
  - SURGERY [None]
  - URTICARIA [None]
